FAERS Safety Report 4586497-5 (Version None)
Quarter: 2005Q1

REPORT INFORMATION
  Report Type: 
  Country: None (occurrence: None)
  Receive Date: 20050218
  Receipt Date: 20050210
  Transmission Date: 20050727
  Serious: Yes (Other)
  Sender: FDA-Public Use
  Company Number: BR-ROCHE-395137

PATIENT
  Sex: Female

DRUGS (2)
  1. CELLCEPT [Suspect]
     Route: 048
     Dates: start: 19980615, end: 19980615
  2. CELLCEPT [Suspect]
     Route: 048
     Dates: start: 19980615

REACTIONS (5)
  - ACOUSTIC NEURITIS [None]
  - HYPOGLYCAEMIA [None]
  - NEURITIS [None]
  - NEUTROPENIA [None]
  - OPTIC NEURITIS [None]
